FAERS Safety Report 23532675 (Version 3)
Quarter: 2024Q1

REPORT INFORMATION
  Report Type: Spontaneous
  Country: CO (occurrence: CO)
  Receive Date: 20240216
  Receipt Date: 20240307
  Transmission Date: 20240410
  Serious: Yes (Other)
  Sender: FDA-Public Use
  Company Number: CO-002147023-NVSC2022CO168050

PATIENT
  Age: 66 Year
  Sex: Female
  Weight: 70 kg

DRUGS (12)
  1. ATORVASTATIN [Suspect]
     Active Substance: ATORVASTATIN
     Indication: Hypercholesterolaemia
     Dosage: UNK, QD (3 YEARS AGO)
     Route: 048
  2. LOSARTAN [Suspect]
     Active Substance: LOSARTAN
     Indication: Hypertension
     Dosage: 100 MG, QD
     Route: 048
  3. LOSARTAN [Suspect]
     Active Substance: LOSARTAN
     Dosage: UNK
     Route: 065
  4. XOLAIR [Suspect]
     Active Substance: OMALIZUMAB
     Indication: Urticaria
     Dosage: 300 MG, QMO
     Route: 058
     Dates: start: 20180228
  5. XOLAIR [Suspect]
     Active Substance: OMALIZUMAB
     Dosage: 300 MG, QMO (4 YEARS AGO)
     Route: 058
  6. XOLAIR [Suspect]
     Active Substance: OMALIZUMAB
     Dosage: 300 MG, QMO, IN PRE-FILLED SYRINGE
     Route: 065
     Dates: end: 202309
  7. XOLAIR [Suspect]
     Active Substance: OMALIZUMAB
     Indication: Chronic spontaneous urticaria
     Dosage: UNK
     Route: 065
     Dates: start: 20220721
  8. XOLAIR [Suspect]
     Active Substance: OMALIZUMAB
     Dosage: UNK
     Route: 065
     Dates: start: 202309
  9. ALLEGRA [Concomitant]
     Active Substance: FEXOFENADINE HYDROCHLORIDE
     Indication: Urticaria
     Dosage: UNK , QD (5 AS REPORTED)
     Route: 048
  10. AMLODIPINE [Concomitant]
     Active Substance: AMLODIPINE BESYLATE
     Indication: Product used for unknown indication
     Dosage: 25 MG, QD
     Route: 048
  11. AMLODIPINE BESYLATE [Concomitant]
     Active Substance: AMLODIPINE BESYLATE
     Indication: Product used for unknown indication
     Dosage: 25 MG, QD
     Route: 048
  12. Diosmina [Concomitant]
     Indication: Varicose vein
     Dosage: UNK UNK, BID (3 MONTHS AGO)
     Route: 048

REACTIONS (17)
  - Glaucoma [Not Recovered/Not Resolved]
  - General physical health deterioration [Recovering/Resolving]
  - Illness [Unknown]
  - Chronic disease [Unknown]
  - Viral infection [Recovered/Resolved]
  - Hypotension [Recovered/Resolved]
  - Amoebiasis [Recovered/Resolved]
  - Hypertension [Not Recovered/Not Resolved]
  - Vomiting [Recovered/Resolved]
  - Asthenia [Recovered/Resolved]
  - Diarrhoea [Recovered/Resolved]
  - Pyrexia [Recovered/Resolved]
  - Urticaria [Recovered/Resolved]
  - Arthralgia [Recovered/Resolved]
  - Pruritus [Unknown]
  - Arthralgia [Unknown]
  - Peripheral swelling [Recovered/Resolved]

NARRATIVE: CASE EVENT DATE: 20220701
